FAERS Safety Report 6078456-0 (Version None)
Quarter: 2009Q1

REPORT INFORMATION
  Report Type: 
  Country: None (occurrence: None)
  Receive Date: 20090212
  Receipt Date: 20090212
  Transmission Date: 20090719
  Serious: Yes (Other)
  Sender: FDA-Public Use
  Company Number: None

PATIENT
  Age: 57 Year
  Sex: Female
  Weight: 68.0396 kg

DRUGS (1)
  1. ALENDRONATE 70MG [Suspect]
     Indication: OSTEOPOROSIS
     Dosage: ONE PER WEEK
     Dates: start: 20081001, end: 20090201

REACTIONS (6)
  - CONDITION AGGRAVATED [None]
  - GASTROOESOPHAGEAL REFLUX DISEASE [None]
  - OESOPHAGEAL PAIN [None]
  - PAIN IN JAW [None]
  - UVEITIS [None]
  - VOCAL CORD CYST [None]
